FAERS Safety Report 18649339 (Version 1)
Quarter: 2020Q4

REPORT INFORMATION
  Report Type: Spontaneous
  Country: US (occurrence: US)
  Receive Date: 20201222
  Receipt Date: 20201222
  Transmission Date: 20210114
  Serious: Yes (Hospitalization)
  Sender: FDA-Public Use
  Company Number: None

PATIENT
  Age: 73 Year
  Sex: Male
  Weight: 70 kg

DRUGS (3)
  1. CEFEPIME [Concomitant]
     Active Substance: CEFEPIME HYDROCHLORIDE
     Dates: start: 20200729, end: 20200802
  2. METRONIDAZOLE. [Concomitant]
     Active Substance: METRONIDAZOLE
     Dates: start: 20200729, end: 20200802
  3. DULAGLUTIDE. [Suspect]
     Active Substance: DULAGLUTIDE

REACTIONS (4)
  - Pneumonia [None]
  - Pancreatitis necrotising [None]
  - Lactic acidosis [None]
  - Abdominal pain [None]

NARRATIVE: CASE EVENT DATE: 20200729
